FAERS Safety Report 7966472-0 (Version None)
Quarter: 2011Q4

REPORT INFORMATION
  Report Type: 
  Country: None (occurrence: None)
  Receive Date: 20111208
  Receipt Date: 20111130
  Transmission Date: 20120403
  Serious: Yes (Other)
  Sender: FDA-Public Use
  Company Number: US-ASTRAZENECA-2011SE54480

PATIENT
  Age: 53 Year
  Sex: Female

DRUGS (2)
  1. SEROQUEL [Suspect]
     Route: 048
  2. SEROQUEL [Suspect]
     Route: 048

REACTIONS (8)
  - CERVIX CARCINOMA STAGE IV [None]
  - MYOCARDIAL INFARCTION [None]
  - HYPOACUSIS [None]
  - VISUAL ACUITY REDUCED [None]
  - CROHN'S DISEASE [None]
  - THROAT CANCER [None]
  - WALKING AID USER [None]
  - CONVULSION [None]
